FAERS Safety Report 5076828-4 (Version None)
Quarter: 2006Q3

REPORT INFORMATION
  Report Type: 
  Country: None (occurrence: None)
  Receive Date: 20060807
  Receipt Date: 20060731
  Transmission Date: 20061208
  Serious: Yes (Hospitalization, Other)
  Sender: FDA-Public Use
  Company Number: 2006-07-2061

PATIENT
  Age: 47 Year
  Sex: Male

DRUGS (5)
  1. PEG-INTRON [Suspect]
     Indication: HEPATITIS C
     Dosage: 120 MCG QWK SUBCUTANEOUS
     Route: 058
     Dates: start: 20060113, end: 20060601
  2. RIBAVIRIN [Suspect]
     Indication: HEPATITIS C
     Dosage: 1000 MG QD ORAL
     Route: 048
     Dates: start: 20060113, end: 20060601
  3. LEXAPRO [Concomitant]
  4. LYRICA [Concomitant]
  5. METHADONE HCL [Concomitant]

REACTIONS (6)
  - ABDOMINAL DISTENSION [None]
  - CONFUSIONAL STATE [None]
  - JAUNDICE [None]
  - LYMPHADENOPATHY [None]
  - SPLENOMEGALY [None]
  - TREATMENT NONCOMPLIANCE [None]
